FAERS Safety Report 22089292 (Version 1)
Quarter: 2023Q1

REPORT INFORMATION
  Report Type: Spontaneous
  Country: US (occurrence: US)
  Receive Date: 20230313
  Receipt Date: 20230313
  Transmission Date: 20230418
  Serious: No
  Sender: FDA-Public Use
  Company Number: US-PERRIGO-22US013588

PATIENT
  Age: 47 Year
  Sex: Male
  Weight: 117.46 kg

DRUGS (3)
  1. NICOTINE POLACRILEX [Suspect]
     Active Substance: NICOTINE
     Indication: Smoking cessation therapy
     Dosage: 2 MG, EVERY 1 TO 2 HOURS
     Route: 002
     Dates: start: 20220905, end: 20221010
  2. METFORMIN [Concomitant]
     Active Substance: METFORMIN HYDROCHLORIDE
     Indication: Type 2 diabetes mellitus
     Dosage: UNKNOWN, UNKNOWN
     Route: 065
     Dates: start: 2021
  3. ROSUVASTATIN [Concomitant]
     Active Substance: ROSUVASTATIN
     Indication: Hyperlipidaemia
     Dosage: UNKNOWN, UNKNOWN
     Route: 065
     Dates: start: 2021

REACTIONS (3)
  - Gingival injury [Not Recovered/Not Resolved]
  - Hyperaesthesia teeth [Recovering/Resolving]
  - Toothache [Recovering/Resolving]

NARRATIVE: CASE EVENT DATE: 20221003
